FAERS Safety Report 24941760 (Version 1)
Quarter: 2025Q1

REPORT INFORMATION
  Report Type: Spontaneous
  Country: US (occurrence: None)
  Receive Date: 20250207
  Receipt Date: 20250207
  Transmission Date: 20250409
  Serious: Yes (Hospitalization)
  Sender: FDA-CTU
  Company Number: None

PATIENT
  Age: 45 Year
  Sex: Female
  Weight: 115.8 kg

DRUGS (3)
  1. CARBOPLATIN [Suspect]
     Active Substance: CARBOPLATIN
  2. FEMARA [Suspect]
     Active Substance: LETROZOLE
  3. TAXOL [Suspect]
     Active Substance: PACLITAXEL

REACTIONS (3)
  - Cardiac failure acute [None]
  - Troponin increased [None]
  - Ventricular dysfunction [None]

NARRATIVE: CASE EVENT DATE: 20241231
